FAERS Safety Report 15844383 (Version 5)
Quarter: 2020Q3

REPORT INFORMATION
  Report Type: Report from Study
  Country: BR (occurrence: BR)
  Receive Date: 20190118
  Receipt Date: 20200803
  Transmission Date: 20201102
  Serious: Yes (Other)
  Sender: FDA-Public Use
  Company Number: PHHY2019BR007187

PATIENT
  Sex: Female
  Weight: 62 kg

DRUGS (7)
  1. GLIFAGE [Concomitant]
     Active Substance: METFORMIN HYDROCHLORIDE
     Indication: DIABETES MELLITUS
     Dosage: 4 DF, QD
     Route: 048
     Dates: start: 2013
  2. SANDOSTATIN LAR DEPOT [Suspect]
     Active Substance: OCTREOTIDE ACETATE
     Dosage: 30 MG, (EVERY 45 DAYS)
     Route: 030
     Dates: start: 2016
  3. SANDOSTATIN LAR DEPOT [Suspect]
     Active Substance: OCTREOTIDE ACETATE
     Dosage: 30 MG
     Route: 030
     Dates: start: 201311, end: 2015
  4. SANDOSTATIN LAR DEPOT [Suspect]
     Active Substance: OCTREOTIDE ACETATE
     Indication: ACROMEGALY
     Dosage: UNK UNK, QMO (EVERY 30 DAYS)
     Route: 030
     Dates: start: 20131118
  5. SANDOSTATIN LAR DEPOT [Suspect]
     Active Substance: OCTREOTIDE ACETATE
     Dosage: 30 MG (EVERY 45 DAYS)
     Route: 030
     Dates: start: 2015
  6. GLICAZIDA [Concomitant]
     Active Substance: GLICLAZIDE
     Indication: DIABETES MELLITUS
     Dosage: 10 MG, QD
     Route: 048
  7. SANDOSTATIN LAR DEPOT [Suspect]
     Active Substance: OCTREOTIDE ACETATE
     Dosage: UNK(EACH 45 DAYS(THE PATIENT INFORMED THAT IT WAS DISCARDED))
     Route: 065
     Dates: start: 201312

REACTIONS (7)
  - Vision blurred [Not Recovered/Not Resolved]
  - Cholelithiasis [Unknown]
  - Cataract [Recovered/Resolved]
  - Diarrhoea [Not Recovered/Not Resolved]
  - Cholecystitis infective [Unknown]
  - Cholecystitis [Unknown]
  - Inappropriate schedule of product administration [Not Recovered/Not Resolved]

NARRATIVE: CASE EVENT DATE: 2015
